FAERS Safety Report 5721039-X (Version None)
Quarter: 2008Q2

REPORT INFORMATION
  Report Type: 
  Country: None (occurrence: None)
  Receive Date: 20080429
  Receipt Date: 20080421
  Transmission Date: 20081010
  Serious: Yes (Other)
  Sender: FDA-Public Use
  Company Number: US-GILEAD-2008-0016151

PATIENT
  Age: 37 Year
  Sex: Male
  Weight: 78.088 kg

DRUGS (7)
  1. TRUVADA [Suspect]
     Indication: HIV INFECTION
     Dates: start: 20080303
  2. REYATAZ [Suspect]
     Indication: HIV INFECTION
     Dates: start: 20080303
  3. NORVIR [Suspect]
     Indication: HIV INFECTION
     Dates: start: 20080303
  4. ALEVE [Concomitant]
     Dates: start: 20070501
  5. MULTI-VITAMIN [Concomitant]
     Dates: start: 19970101
  6. JUICE PLUS [Concomitant]
     Dates: start: 20070701
  7. ADVIL [Concomitant]
     Dates: start: 19830101

REACTIONS (1)
  - HYPERBILIRUBINAEMIA [None]
